FAERS Safety Report 6204013-9 (Version None)
Quarter: 2009Q2

REPORT INFORMATION
  Report Type: 
  Country: None (occurrence: None)
  Receive Date: 20090527
  Receipt Date: 20090520
  Transmission Date: 20091009
  Serious: Yes (Other)
  Sender: FDA-Public Use
  Company Number: US-GENENTECH-276681

PATIENT
  Sex: Female
  Weight: 64 kg

DRUGS (6)
  1. BEVACIZUMAB [Suspect]
     Indication: BREAST CANCER METASTATIC
     Dosage: 597 MG, UNK
     Route: 042
     Dates: start: 20080527, end: 20090127
  2. BEVACIZUMAB [Suspect]
     Dosage: UNK
     Route: 042
     Dates: start: 20090224
  3. ABRAXANE [Suspect]
     Indication: BREAST CANCER METASTATIC
     Dosage: 208 MG, UNK
     Route: 042
     Dates: start: 20080527, end: 20090127
  4. ABRAXANE [Suspect]
     Dosage: UNK
     Dates: start: 20090224
  5. ESSIAC HERBAL SUPPLEMENT [Concomitant]
     Indication: DRUG USE FOR UNKNOWN INDICATION
  6. VITAMIN B COMPLEX CAP [Concomitant]
     Indication: DRUG USE FOR UNKNOWN INDICATION

REACTIONS (1)
  - HEPATIC ENZYME INCREASED [None]
